FAERS Safety Report 14056552 (Version 1)
Quarter: 2017Q4

REPORT INFORMATION
  Report Type: Spontaneous
  Country: ES (occurrence: ES)
  Receive Date: 20171006
  Receipt Date: 20171006
  Transmission Date: 20180321
  Serious: Yes (Other)
  Sender: FDA-Public Use
  Company Number: ES-AMGEN-ESPSP2017147301

PATIENT
  Age: 58 Year
  Sex: Male

DRUGS (4)
  1. FOLINIC ACID [Concomitant]
     Active Substance: LEUCOVORIN
     Indication: COLORECTAL CANCER METASTATIC
     Dosage: UNK, CYCLICAL (12 CYCLE)
     Dates: start: 20120220, end: 20120727
  2. OXALIPLATIN. [Concomitant]
     Active Substance: OXALIPLATIN
     Indication: COLORECTAL CANCER METASTATIC
     Dosage: UNK, CYCLICAL (12 CYCLE)
     Dates: start: 20120220, end: 20120727
  3. FLUOROURACIL. [Concomitant]
     Active Substance: FLUOROURACIL
     Indication: COLORECTAL CANCER METASTATIC
     Dosage: UNK, CYCLICAL (12 CYCLE)
     Dates: start: 20120220, end: 20120727
  4. VECTIBIX [Suspect]
     Active Substance: PANITUMUMAB
     Indication: COLORECTAL CANCER METASTATIC
     Dosage: UNK UNK, CYCLICAL (12 CYCLE)
     Route: 065
     Dates: start: 20120220, end: 20120727

REACTIONS (1)
  - Adenocarcinoma gastric [Recovered/Resolved]

NARRATIVE: CASE EVENT DATE: 20130627
